FAERS Safety Report 6259367-4 (Version None)
Quarter: 2009Q3

REPORT INFORMATION
  Report Type: 
  Country: None (occurrence: None)
  Receive Date: 20090706
  Receipt Date: 20090630
  Transmission Date: 20100115
  Serious: Yes (Other)
  Sender: FDA-Public Use
  Company Number: 1000007143

PATIENT
  Age: 61 Year
  Sex: Female

DRUGS (7)
  1. LEXAPRO [Suspect]
     Indication: BIPOLAR DISORDER
     Dosage: 10 MG (10 MG, 1 IN 1 D), ORAL
     Route: 048
     Dates: start: 20080601
  2. ALPRAZOLAM [Concomitant]
  3. PREVACID [Concomitant]
  4. SINGULAIR [Concomitant]
  5. ADVIL [Concomitant]
  6. MULTI-VITAMINS [Concomitant]
  7. CALCIUM [Concomitant]

REACTIONS (5)
  - BREAST CANCER IN SITU [None]
  - BREAST CANCER RECURRENT [None]
  - BREAST PAIN [None]
  - BREAST SWELLING [None]
  - OESTROGEN RECEPTOR ASSAY POSITIVE [None]
